FAERS Safety Report 12864358 (Version 2)
Quarter: 2016Q4

REPORT INFORMATION
  Report Type: Spontaneous
  Country: GB (occurrence: GB)
  Receive Date: 20161020
  Receipt Date: 20161028
  Transmission Date: 20170207
  Serious: Yes (Other)
  Sender: FDA-Public Use
  Company Number: GB-009507513-1610GBR009655

PATIENT
  Age: 63 Year
  Sex: Female
  Weight: 50.8 kg

DRUGS (1)
  1. ALENDRONATE SODIUM. [Suspect]
     Active Substance: ALENDRONATE SODIUM
     Indication: OSTEOPOROSIS
     Dosage: 70 MG, QW
     Route: 048
     Dates: start: 20020906, end: 201604

REACTIONS (6)
  - Pain in jaw [Not Recovered/Not Resolved]
  - Oral mucosal exfoliation [Unknown]
  - Jaw disorder [Not Recovered/Not Resolved]
  - Gingival pain [Unknown]
  - Gingival bleeding [Unknown]
  - Gingival recession [Unknown]

NARRATIVE: CASE EVENT DATE: 201404
